FAERS Safety Report 17194334 (Version 4)
Quarter: 2021Q4

REPORT INFORMATION
  Report Type: Spontaneous
  Country: US (occurrence: None)
  Receive Date: 20191224
  Receipt Date: 20211110
  Transmission Date: 20220304
  Serious: Yes (Hospitalization)
  Sender: FDA-Public Use
  Company Number: 2019SF84362

PATIENT
  Age: 16991 Day
  Sex: Male
  Weight: 117 kg

DRUGS (110)
  1. FARXIGA [Suspect]
     Active Substance: DAPAGLIFLOZIN PROPANEDIOL
     Indication: Type 2 diabetes mellitus
     Route: 048
     Dates: start: 20170620, end: 201712
  2. FARXIGA [Suspect]
     Active Substance: DAPAGLIFLOZIN PROPANEDIOL
     Indication: Weight decreased
     Route: 048
     Dates: start: 20170620, end: 201712
  3. FARXIGA [Suspect]
     Active Substance: DAPAGLIFLOZIN PROPANEDIOL
     Indication: Blood pressure decreased
     Route: 048
     Dates: start: 20170620, end: 201712
  4. FARXIGA [Suspect]
     Active Substance: DAPAGLIFLOZIN PROPANEDIOL
     Indication: Type 2 diabetes mellitus
     Dosage: 5.0MG UNKNOWN
     Route: 048
     Dates: start: 20170620
  5. FARXIGA [Suspect]
     Active Substance: DAPAGLIFLOZIN PROPANEDIOL
     Indication: Weight decreased
     Dosage: 5.0MG UNKNOWN
     Route: 048
     Dates: start: 20170620
  6. FARXIGA [Suspect]
     Active Substance: DAPAGLIFLOZIN PROPANEDIOL
     Indication: Blood pressure decreased
     Dosage: 5.0MG UNKNOWN
     Route: 048
     Dates: start: 20170620
  7. FARXIGA [Suspect]
     Active Substance: DAPAGLIFLOZIN PROPANEDIOL
     Indication: Type 2 diabetes mellitus
     Dosage: 5.0MG UNKNOWN
     Route: 048
     Dates: start: 20170827
  8. FARXIGA [Suspect]
     Active Substance: DAPAGLIFLOZIN PROPANEDIOL
     Indication: Weight decreased
     Dosage: 5.0MG UNKNOWN
     Route: 048
     Dates: start: 20170827
  9. FARXIGA [Suspect]
     Active Substance: DAPAGLIFLOZIN PROPANEDIOL
     Indication: Blood pressure decreased
     Dosage: 5.0MG UNKNOWN
     Route: 048
     Dates: start: 20170827
  10. FARXIGA [Suspect]
     Active Substance: DAPAGLIFLOZIN PROPANEDIOL
     Indication: Type 2 diabetes mellitus
     Dosage: 5.0MG UNKNOWN
     Route: 048
     Dates: start: 20170927
  11. FARXIGA [Suspect]
     Active Substance: DAPAGLIFLOZIN PROPANEDIOL
     Indication: Weight decreased
     Dosage: 5.0MG UNKNOWN
     Route: 048
     Dates: start: 20170927
  12. FARXIGA [Suspect]
     Active Substance: DAPAGLIFLOZIN PROPANEDIOL
     Indication: Blood pressure decreased
     Dosage: 5.0MG UNKNOWN
     Route: 048
     Dates: start: 20170927
  13. FARXIGA [Suspect]
     Active Substance: DAPAGLIFLOZIN PROPANEDIOL
     Indication: Type 2 diabetes mellitus
     Dosage: 5.0MG UNKNOWN
     Route: 048
     Dates: start: 20171126
  14. FARXIGA [Suspect]
     Active Substance: DAPAGLIFLOZIN PROPANEDIOL
     Indication: Weight decreased
     Dosage: 5.0MG UNKNOWN
     Route: 048
     Dates: start: 20171126
  15. FARXIGA [Suspect]
     Active Substance: DAPAGLIFLOZIN PROPANEDIOL
     Indication: Blood pressure decreased
     Dosage: 5.0MG UNKNOWN
     Route: 048
     Dates: start: 20171126
  16. FARXIGA [Suspect]
     Active Substance: DAPAGLIFLOZIN PROPANEDIOL
     Indication: Type 2 diabetes mellitus
     Dosage: UNKNOWN
     Route: 048
     Dates: start: 20171207
  17. FARXIGA [Suspect]
     Active Substance: DAPAGLIFLOZIN PROPANEDIOL
     Indication: Weight decreased
     Dosage: UNKNOWN
     Route: 048
     Dates: start: 20171207
  18. FARXIGA [Suspect]
     Active Substance: DAPAGLIFLOZIN PROPANEDIOL
     Indication: Blood pressure decreased
     Dosage: UNKNOWN
     Route: 048
     Dates: start: 20171207
  19. DICLOFENAC SODIUM [Concomitant]
     Active Substance: DICLOFENAC SODIUM
     Indication: Pain
     Dates: start: 20171207
  20. FISH OIL [Concomitant]
     Active Substance: FISH OIL
     Indication: Cardiac disorder
     Dates: start: 20171207
  21. LEVAQUIN [Concomitant]
     Active Substance: LEVOFLOXACIN
  22. LISINOPRIL [Concomitant]
     Active Substance: LISINOPRIL
     Indication: Hypertension
     Dates: start: 20171207
  23. LORATADINE [Concomitant]
     Active Substance: LORATADINE
     Indication: Hypersensitivity
     Dates: start: 20171207
  24. LORAZEPAM [Concomitant]
     Active Substance: LORAZEPAM
     Indication: Anxiety
     Dates: start: 20171207
  25. METFORMIN HYDROCHLORIDE [Concomitant]
     Active Substance: METFORMIN HYDROCHLORIDE
     Indication: Diabetes mellitus
     Dates: start: 20171207
  26. METRONIDAZOLE [Concomitant]
     Active Substance: METRONIDAZOLE
     Indication: Antibiotic therapy
     Dates: start: 20171207
  27. VITAMIN B12 [Concomitant]
     Active Substance: CYANOCOBALAMIN
     Indication: Vitamin supplementation
     Dates: start: 20171207
  28. VITAMIN C [Concomitant]
     Active Substance: ASCORBIC ACID
     Indication: Vitamin supplementation
     Dates: start: 20171207
  29. NORCO [Concomitant]
     Active Substance: ACETAMINOPHEN\HYDROCODONE BITARTRATE
     Indication: Pain
  30. MIRALAX [Concomitant]
     Active Substance: POLYETHYLENE GLYCOL 3350
  31. FENOFIBRATE [Concomitant]
     Active Substance: FENOFIBRATE
  32. HYDROCHLOROTHIAZIDE [Concomitant]
     Active Substance: HYDROCHLOROTHIAZIDE
  33. PERCOCET [Concomitant]
     Active Substance: ACETAMINOPHEN\OXYCODONE HYDROCHLORIDE
  34. LIDOCAINE [Concomitant]
     Active Substance: LIDOCAINE
  35. MIDAZOLAM [Concomitant]
     Active Substance: MIDAZOLAM
  36. METOCLOPRAMIDE [Concomitant]
     Active Substance: METOCLOPRAMIDE
  37. ONDANSETRON [Concomitant]
     Active Substance: ONDANSETRON
  38. CEFAZOLIN [Concomitant]
     Active Substance: CEFAZOLIN
  39. DILAUDID [Concomitant]
     Active Substance: HYDROMORPHONE HYDROCHLORIDE
  40. PHENYLEPHRINE [Concomitant]
     Active Substance: PHENYLEPHRINE HYDROCHLORIDE
  41. TORADOL [Concomitant]
     Active Substance: KETOROLAC TROMETHAMINE
  42. SODIUM CHLORIDE [Concomitant]
     Active Substance: SODIUM CHLORIDE
  43. SEVOFLURANE [Concomitant]
     Active Substance: SEVOFLURANE
  44. DEXAMETHASONE [Concomitant]
     Active Substance: DEXAMETHASONE
  45. SIMVASTATIN [Concomitant]
     Active Substance: SIMVASTATIN
  46. AMOXICILLIN\CLAVULANATE POTASSIUM [Concomitant]
     Active Substance: AMOXICILLIN\CLAVULANATE POTASSIUM
  47. CLONIDINE [Concomitant]
     Active Substance: CLONIDINE
  48. VIAGRA [Concomitant]
     Active Substance: SILDENAFIL CITRATE
  49. AZITHROMYCIN [Concomitant]
     Active Substance: AZITHROMYCIN
  50. CEPHALEXIN [Concomitant]
     Active Substance: CEPHALEXIN
  51. FLUTICASONE [Concomitant]
     Active Substance: FLUTICASONE
  52. TRIAMCINOLONE [Concomitant]
     Active Substance: TRIAMCINOLONE
  53. CRESTOR [Concomitant]
     Active Substance: ROSUVASTATIN CALCIUM
  54. CYCLOBENZAPRINE [Concomitant]
     Active Substance: CYCLOBENZAPRINE
  55. METHYLPREDNISOLONE [Concomitant]
     Active Substance: METHYLPREDNISOLONE
  56. NAPROXEN [Concomitant]
     Active Substance: NAPROXEN
  57. TRAMADOL [Concomitant]
     Active Substance: TRAMADOL
  58. BREVIBLOC [Concomitant]
     Active Substance: ESMOLOL HYDROCHLORIDE
  59. ZOSYN [Concomitant]
     Active Substance: PIPERACILLIN SODIUM\TAZOBACTAM SODIUM
  60. NICODERM CQ [Concomitant]
     Active Substance: NICOTINE
  61. HEPARIN [Concomitant]
     Active Substance: HEPARIN SODIUM
  62. VOLTAREN [Concomitant]
     Active Substance: DICLOFENAC SODIUM
  63. BENZONATATE [Concomitant]
     Active Substance: BENZONATATE
  64. AMOXICILLIN [Concomitant]
     Active Substance: AMOXICILLIN
  65. NASONEX [Concomitant]
     Active Substance: MOMETASONE FUROATE
  66. ANTIPYRINE -BENZOCAINE [Concomitant]
  67. NEOMYCIN-POLYMYXIN [Concomitant]
  68. IBUPROFEN [Concomitant]
     Active Substance: IBUPROFEN
  69. PROMETHAZINE [Concomitant]
     Active Substance: PROMETHAZINE HYDROCHLORIDE
  70. INVOKANA [Concomitant]
     Active Substance: CANAGLIFLOZIN
  71. SULFAMETHOXAZOLE [Concomitant]
     Active Substance: SULFAMETHOXAZOLE
  72. HUMALOG [Concomitant]
     Active Substance: INSULIN LISPRO
  73. JANUVIA [Concomitant]
     Active Substance: SITAGLIPTIN PHOSPHATE
  74. SILDENAFIL [Concomitant]
     Active Substance: SILDENAFIL
  75. DOXYCYCLINE HYCLATE [Concomitant]
     Active Substance: DOXYCYCLINE HYCLATE
  76. BYSTOLIC [Concomitant]
     Active Substance: NEBIVOLOL HYDROCHLORIDE
  77. GEMFIBROZIL [Concomitant]
     Active Substance: GEMFIBROZIL
  78. MUPIROCIN [Concomitant]
     Active Substance: MUPIROCIN
  79. HYDROGEN PEROXIDE [Concomitant]
     Active Substance: HYDROGEN PEROXIDE
  80. MARCAINE [Concomitant]
     Active Substance: BUPIVACAINE HYDROCHLORIDE
  81. XYLOCAINE/EPINEPHRINE [Concomitant]
  82. FLAGYL [Concomitant]
     Active Substance: METRONIDAZOLE\METRONIDAZOLE HYDROCHLORIDE
  83. GARAMYCIN [Concomitant]
     Active Substance: GENTAMICIN SULFATE
  84. VANCOMYCIN [Concomitant]
     Active Substance: VANCOMYCIN
  85. ADENOSINE [Concomitant]
     Active Substance: ADENOSINE
  86. PROTHROMBIN [Concomitant]
     Active Substance: PROTHROMBIN
  87. NITROGLYCERIN [Concomitant]
     Active Substance: NITROGLYCERIN
  88. ISOVUE [Concomitant]
     Active Substance: IOPAMIDOL
  89. LEXISCAN [Concomitant]
     Active Substance: REGADENOSON
  90. TRADJENTA [Concomitant]
     Active Substance: LINAGLIPTIN
  91. GLUCOPHAGE [Concomitant]
     Active Substance: METFORMIN HYDROCHLORIDE
  92. TYLENOL [Concomitant]
     Active Substance: ACETAMINOPHEN
  93. DIPRIVAN [Concomitant]
     Active Substance: PROPOFOL
  94. ZEMURON [Concomitant]
     Active Substance: ROCURONIUM BROMIDE
  95. PROSTIGMINE [Concomitant]
  96. ROBINUL [Concomitant]
     Active Substance: GLYCOPYRROLATE
  97. SUBLIMAZE [Concomitant]
     Active Substance: FENTANYL CITRATE
  98. VERSED [Concomitant]
     Active Substance: MIDAZOLAM HYDROCHLORIDE
  99. POTASSIUM PHOSPHATE [Concomitant]
     Active Substance: POTASSIUM PHOSPHATE
  100. ALBUMINAR [Concomitant]
     Active Substance: ALBUMIN HUMAN
  101. MAXIPIME [Concomitant]
     Active Substance: CEFEPIME HYDROCHLORIDE
  102. TOPROL XL [Concomitant]
     Active Substance: METOPROLOL SUCCINATE
  103. ANCEF [Concomitant]
     Active Substance: CEFAZOLIN SODIUM
  104. MAGNESIUM [Concomitant]
     Active Substance: MAGNESIUM
  105. VITAMIN B12 [Concomitant]
     Active Substance: CYANOCOBALAMIN
  106. VITAMIN E [Concomitant]
     Active Substance: .ALPHA.-TOCOPHEROL
  107. AMLODIPINE [Concomitant]
     Active Substance: AMLODIPINE BESYLATE
     Dates: start: 20200123
  108. LIPITOR [Concomitant]
     Active Substance: ATORVASTATIN CALCIUM
     Dates: start: 20200219
  109. AUGMENTIN [Concomitant]
     Active Substance: AMOXICILLIN\CLAVULANATE POTASSIUM
     Dates: start: 20200123
  110. LITHIUM [Concomitant]
     Active Substance: LITHIUM

REACTIONS (11)
  - Fournier^s gangrene [Unknown]
  - Necrotising fasciitis [Unknown]
  - Scrotal cyst [Unknown]
  - Testicular pain [Unknown]
  - Scrotal pain [Unknown]
  - Scrotal swelling [Unknown]
  - Groin pain [Unknown]
  - Groin abscess [Unknown]
  - Cellulitis [Unknown]
  - Gas gangrene [Unknown]
  - Tooth abscess [Unknown]

NARRATIVE: CASE EVENT DATE: 20120514
